FAERS Safety Report 18436674 (Version 2)
Quarter: 2020Q4

REPORT INFORMATION
  Report Type: Spontaneous
  Country: JP (occurrence: JP)
  Receive Date: 20201028
  Receipt Date: 20201218
  Transmission Date: 20210114
  Serious: Yes (Other)
  Sender: FDA-Public Use
  Company Number: JP-AMGEN-JPNSP2020171133

PATIENT
  Age: 6 Year
  Sex: Female

DRUGS (4)
  1. TACROLIMUS. [Concomitant]
     Active Substance: TACROLIMUS
  2. BLINCYTO [Suspect]
     Active Substance: BLINATUMOMAB
     Indication: B PRECURSOR TYPE ACUTE LEUKAEMIA
     Dosage: UNK
     Route: 041
  3. INOTUZUMAB OZOGAMICIN [Concomitant]
     Active Substance: INOTUZUMAB OZOGAMICIN
     Indication: ACUTE LYMPHOCYTIC LEUKAEMIA
  4. PROGRAF [Suspect]
     Active Substance: TACROLIMUS
     Indication: PRODUCT USED FOR UNKNOWN INDICATION
     Dosage: UNK
     Route: 065

REACTIONS (4)
  - Schizophrenia [Recovered/Resolved]
  - Thrombotic microangiopathy [Recovered/Resolved]
  - Graft versus host disease [Recovered/Resolved]
  - Blood pressure increased [Unknown]

NARRATIVE: CASE EVENT DATE: 20200225
